FAERS Safety Report 24974495 (Version 1)
Quarter: 2025Q1

REPORT INFORMATION
  Report Type: Spontaneous
  Country: US (occurrence: US)
  Receive Date: 20250217
  Receipt Date: 20250217
  Transmission Date: 20250409
  Serious: Yes (Other)
  Sender: ALKEM
  Company Number: US-ALKEM LABORATORIES LIMITED-US-ALKEM-2024-14883

PATIENT
  Sex: Male

DRUGS (2)
  1. FINASTERIDE [Interacting]
     Active Substance: FINASTERIDE
     Indication: Product used for unknown indication
     Route: 065
  2. CIALIS [Interacting]
     Active Substance: TADALAFIL
     Indication: Erectile dysfunction
     Route: 065

REACTIONS (3)
  - Erectile dysfunction [Unknown]
  - Adverse drug reaction [Unknown]
  - Drug interaction [Unknown]
